FAERS Safety Report 4663625-4 (Version None)
Quarter: 2005Q2

REPORT INFORMATION
  Report Type: 
  Country: None (occurrence: None)
  Receive Date: 20050517
  Receipt Date: 20050511
  Transmission Date: 20051028
  Serious: Yes (Hospitalization)
  Sender: FDA-Public Use
  Company Number: JP-MERCK-0505USA01641

PATIENT
  Age: 31 Day
  Sex: Male
  Weight: 1 kg

DRUGS (1)
  1. DECADRON [Suspect]
     Route: 048
     Dates: start: 19980101, end: 19980101

REACTIONS (3)
  - CATHETER RELATED INFECTION [None]
  - CATHETER SITE HAEMORRHAGE [None]
  - SYSTEMIC CANDIDA [None]
